FAERS Safety Report 6369297-5 (Version None)
Quarter: 2009Q3

REPORT INFORMATION
  Report Type: 
  Country: None (occurrence: None)
  Receive Date: 20090922
  Receipt Date: 20090706
  Transmission Date: 20100115
  Serious: No
  Sender: FDA-Public Use
  Company Number: US-ALLERGAN-0909407US

PATIENT
  Sex: Female

DRUGS (1)
  1. FML [Suspect]
     Indication: EYELID DISORDER
     Dosage: UNK, QHS
     Route: 061

REACTIONS (2)
  - ERYTHEMA OF EYELID [None]
  - EYELID OEDEMA [None]
